FAERS Safety Report 8175209-4 (Version None)
Quarter: 2012Q1

REPORT INFORMATION
  Report Type: 
  Country: None (occurrence: None)
  Receive Date: 20120227
  Receipt Date: 20120220
  Transmission Date: 20120608
  Serious: Yes (Hospitalization)
  Sender: FDA-Public Use
  Company Number: 2012MA002282

PATIENT
  Sex: Male
  Weight: 2.72 kg

DRUGS (2)
  1. PHENYTOIN [Suspect]
     Indication: FOETAL EXPOSURE DURING PREGNANCY
     Dosage: 200 MG,D, TRPL
     Route: 064
  2. VALPROIC ACID [Suspect]
     Indication: FOETAL EXPOSURE DURING PREGNANCY
     Dosage: 600 MG, QD, TRPL
     Route: 062

REACTIONS (17)
  - BLOOD CREATINE PHOSPHOKINASE INCREASED [None]
  - BLOOD CREATINE PHOSPHOKINASE MB INCREASED [None]
  - PLATELET COUNT DECREASED [None]
  - CAESAREAN SECTION [None]
  - WHITE BLOOD CELL COUNT INCREASED [None]
  - ASPARTATE AMINOTRANSFERASE INCREASED [None]
  - BRADYCARDIA [None]
  - USE OF ACCESSORY RESPIRATORY MUSCLES [None]
  - BLOOD LACTATE DEHYDROGENASE INCREASED [None]
  - AGITATION NEONATAL [None]
  - HYPOGLYCAEMIA NEONATAL [None]
  - CYANOSIS NEONATAL [None]
  - TRANSIENT TACHYPNOEA OF THE NEWBORN [None]
  - MATERNAL DRUGS AFFECTING FOETUS [None]
  - PLACENTA PRAEVIA [None]
  - DYSPNOEA [None]
  - HYPOTONIA NEONATAL [None]
